FAERS Safety Report 14958007 (Version 1)
Quarter: 2018Q2

REPORT INFORMATION
  Report Type: Spontaneous
  Country: NL (occurrence: NL)
  Receive Date: 20180531
  Receipt Date: 20180531
  Transmission Date: 20180711
  Serious: Yes (Other)
  Sender: FDA-Public Use
  Company Number: NL-SAMSUNG BIOEPIS-SB-2018-06504

PATIENT
  Age: 45 Year
  Sex: Female

DRUGS (2)
  1. THIOSIX TABLETS [Suspect]
     Active Substance: THIOGUANINE ANHYDROUS
     Indication: INFLAMMATORY BOWEL DISEASE
     Route: 065
     Dates: start: 20160712
  2. INFLIXIMAB [Suspect]
     Active Substance: INFLIXIMAB
     Indication: PRODUCT USED FOR UNKNOWN INDICATION
     Dosage: UNKNOWN
     Route: 065

REACTIONS (11)
  - Eczema [Recovered/Resolved]
  - Toxic skin eruption [Recovered/Resolved]
  - Swelling [Recovered/Resolved]
  - Fatigue [Recovered/Resolved]
  - Skin exfoliation [Recovered/Resolved]
  - Wound secretion [Recovered/Resolved]
  - Pubic pain [Recovered/Resolved]
  - Inflammation [Recovered/Resolved]
  - Genital erythema [Recovered/Resolved]
  - Eye inflammation [Recovered/Resolved]
  - Erythema [Recovered/Resolved]

NARRATIVE: CASE EVENT DATE: 20170308
